FAERS Safety Report 12413814 (Version 1)
Quarter: 2016Q2

REPORT INFORMATION
  Report Type: Report from Study
  Country: JP (occurrence: JP)
  Receive Date: 20160527
  Receipt Date: 20160527
  Transmission Date: 20160815
  Serious: Yes (Other)
  Sender: FDA-Public Use
  Company Number: JP-ARBOR PHARMACEUTICALS, LLC-JP-2016ARB000369

PATIENT
  Age: 67 Year
  Sex: Male
  Weight: 52 kg

DRUGS (3)
  1. FERON                              /05982701/ [Concomitant]
     Indication: MALIGNANT GLIOMA
     Dosage: 3 MILLION IU, QD
     Dates: start: 20130610, end: 20130719
  2. TEMODAL [Suspect]
     Active Substance: TEMOZOLOMIDE
     Indication: MALIGNANT GLIOMA
     Dosage: 120 MG, QD
     Route: 048
     Dates: start: 20130610, end: 20130721
  3. GLIADEL [Suspect]
     Active Substance: CARMUSTINE
     Indication: MALIGNANT GLIOMA
     Dosage: 7.7 MG, 5 TOTAL
     Dates: start: 20130426

REACTIONS (1)
  - Aplastic anaemia [Not Recovered/Not Resolved]

NARRATIVE: CASE EVENT DATE: 20130920
